FAERS Safety Report 9135382 (Version 1)
Quarter: 2013Q1

REPORT INFORMATION
  Report Type: Spontaneous
  Country: US (occurrence: US)
  Receive Date: 20130304
  Receipt Date: 20130304
  Transmission Date: 20140127
  Serious: No
  Sender: FDA-Public Use
  Company Number: US-ENDO PHARMACEUTICALS INC.-ENDC20110197

PATIENT
  Sex: Male

DRUGS (5)
  1. ENDOCET 10MG/325MG [Suspect]
     Indication: PAIN IN EXTREMITY
     Dosage: 10MG/325MG
     Route: 048
     Dates: start: 201104
  2. WARFARIN [Concomitant]
     Dosage: UNK
  3. LOVASTATIN [Concomitant]
     Indication: BLOOD CHOLESTEROL
     Dosage: UNK
  4. DILTIAZEM [Concomitant]
     Indication: BLOOD PRESSURE
     Dosage: UNK
  5. CLONAZEPAM [Concomitant]
     Indication: INSOMNIA
     Dosage: UNK

REACTIONS (5)
  - Decreased appetite [Not Recovered/Not Resolved]
  - Fall [Recovered/Resolved]
  - Weight decreased [Not Recovered/Not Resolved]
  - Somnolence [Not Recovered/Not Resolved]
  - Constipation [Not Recovered/Not Resolved]
